FAERS Safety Report 18414461 (Version 1)
Quarter: 2020Q4

REPORT INFORMATION
  Report Type: Spontaneous
  Country: US (occurrence: US)
  Receive Date: 20201021
  Receipt Date: 20201021
  Transmission Date: 20210114
  Serious: Yes (Disabling, Other)
  Sender: FDA-Public Use
  Company Number: None

PATIENT
  Age: 83 Year
  Sex: Male
  Weight: 72 kg

DRUGS (5)
  1. DEXAMETHASONE. [Suspect]
     Active Substance: DEXAMETHASONE
     Indication: BRAIN NEOPLASM
     Dosage: ?          QUANTITY:1 TABLET(S);?
     Route: 048
     Dates: start: 20200703, end: 20200919
  2. VITAMINS [Concomitant]
     Active Substance: VITAMINS
  3. DARVON [Concomitant]
     Active Substance: PROPOXYPHENE HYDROCHLORIDE
  4. EYE INJECTIONS [Concomitant]
  5. DEXAMETHASONE. [Suspect]
     Active Substance: DEXAMETHASONE
     Indication: LUNG NEOPLASM MALIGNANT
     Dosage: ?          QUANTITY:1 TABLET(S);?
     Route: 048
     Dates: start: 20200703, end: 20200919

REACTIONS (7)
  - Urinary incontinence [None]
  - Anal incontinence [None]
  - Hypersomnia [None]
  - Peripheral swelling [None]
  - Asthenia [None]
  - Fatigue [None]
  - Loss of personal independence in daily activities [None]

NARRATIVE: CASE EVENT DATE: 20200920
